FAERS Safety Report 9668786 (Version 1)
Quarter: 2013Q4

REPORT INFORMATION
  Report Type: Spontaneous
  Country: IT (occurrence: IT)
  Receive Date: 20131105
  Receipt Date: 20131105
  Transmission Date: 20140711
  Serious: Yes (Hospitalization)
  Sender: FDA-Public Use
  Company Number: IT-TEVA-440218ISR

PATIENT
  Age: 64 Year
  Sex: Male

DRUGS (1)
  1. AMOXICILLIN [Suspect]
     Indication: PROPHYLAXIS
     Dosage: 1000MG PILLS
     Route: 048

REACTIONS (2)
  - Kounis syndrome [Recovered/Resolved]
  - Abdominal pain upper [Unknown]
